FAERS Safety Report 6890873-5 (Version None)
Quarter: 2010Q3

REPORT INFORMATION
  Report Type: 
  Country: None (occurrence: None)
  Receive Date: 20100731
  Receipt Date: 20090402
  Transmission Date: 20110219
  Serious: Yes (Hospitalization, Other)
  Sender: FDA-Public Use
  Company Number: US-PFIZER INC-2009175399

PATIENT
  Sex: Female
  Weight: 131 kg

DRUGS (6)
  1. LIPITOR [Suspect]
     Indication: BLOOD CHOLESTEROL INCREASED
     Dosage: 80 MG, 1X/DAY
     Dates: start: 20080101, end: 20090225
  2. LIPITOR [Suspect]
     Dosage: 160 MG, 1X/DAY
     Dates: end: 20080101
  3. ULTRAM [Concomitant]
     Indication: PAIN
     Dosage: UNK
  4. WARFARIN [Concomitant]
     Dosage: UNK
  5. SYNTHROID [Concomitant]
     Dosage: UNK
  6. LASIX [Concomitant]
     Dosage: UNK

REACTIONS (8)
  - DEPRESSION [None]
  - FEELING JITTERY [None]
  - ILL-DEFINED DISORDER [None]
  - INTENTIONAL DRUG MISUSE [None]
  - MUSCULAR WEAKNESS [None]
  - PNEUMONIA [None]
  - RENAL FAILURE [None]
  - TREMOR [None]
